FAERS Safety Report 8205896-3 (Version None)
Quarter: 2012Q1

REPORT INFORMATION
  Report Type: 
  Country: None (occurrence: None)
  Receive Date: 20120313
  Receipt Date: 20120308
  Transmission Date: 20120608
  Serious: Yes (Life-Threatening, Hospitalization)
  Sender: FDA-Public Use
  Company Number: PHHY2012TR020627

PATIENT
  Sex: Male

DRUGS (1)
  1. METHOTREXATE [Suspect]
     Dosage: 2.5 MG, QD; FOR 3 DAYS ACCIDENTALLY
     Route: 048

REACTIONS (4)
  - BONE MARROW FAILURE [None]
  - MOUTH ULCERATION [None]
  - CARDIOVASCULAR DISORDER [None]
  - BLOOD DISORDER [None]
